FAERS Safety Report 9850068 (Version 1)
Quarter: 2014Q1

REPORT INFORMATION
  Report Type: Spontaneous
  Country: US (occurrence: None)
  Receive Date: 20140124
  Receipt Date: 20140124
  Transmission Date: 20141002
  Serious: Yes (Death)
  Sender: FDA-Public Use
  Company Number: FK201400141

PATIENT
  Age: 78 Year
  Sex: Female

DRUGS (4)
  1. METOPROLOL INJECTION (MANUFACTURER UNKNOWN) (METOPROLOL) [Suspect]
     Indication: PRODUCT USED FOR UNKNOWN INDICATION
     Dosage: UNKNOWN, UNKNOWN, INGESTION
  2. CARDIAC GLYCOSIDE (CARDIAC GLYCOSIDES) (NULL) [Suspect]
     Indication: PRODUCT USED FOR UNKNOWN INDICATION
     Route: 051
  3. VASOPRESSORS [Suspect]
     Indication: PRODUCT USED FOR UNKNOWN INDICATION
     Route: 051
  4. LISINOPRIL (LISINOPRIL) [Suspect]
     Indication: PRODUCT USED FOR UNKNOWN INDICATION
     Route: 051

REACTIONS (2)
  - Toxicity to various agents [None]
  - Adverse drug reaction [None]
